FAERS Safety Report 9033587 (Version 5)
Quarter: 2013Q2

REPORT INFORMATION
  Report Type: Spontaneous
  Country: US (occurrence: US)
  Receive Date: 20130128
  Receipt Date: 20130429
  Transmission Date: 20140414
  Serious: Yes (Other)
  Sender: FDA-Public Use
  Company Number: US-AMGEN-USASP2013004561

PATIENT
  Age: 75 Year
  Sex: Female
  Weight: 56.69 kg

DRUGS (24)
  1. ENBREL [Suspect]
     Indication: PSORIATIC ARTHROPATHY
     Dosage: 50 MG, WEEKLY
     Route: 058
     Dates: start: 20121025, end: 201301
  2. CORAL CALCIUM                      /00751501/ [Concomitant]
     Dosage: 3 TABLETS DAILY
     Dates: start: 20041105
  3. CRANBERRY                          /01512301/ [Concomitant]
     Dosage: 500 MG, QD
     Route: 048
     Dates: start: 20041105
  4. EDTA                               /00146301/ [Concomitant]
     Dosage: UNK
     Dates: start: 20051229
  5. FISH OIL [Concomitant]
     Dosage: ONE CAPSULE DAILY
     Dates: start: 20030619
  6. GARLIC                             /01570501/ [Concomitant]
     Dosage: 500 MG, TWO TABLETS DAILY
     Route: 048
     Dates: start: 20041105
  7. GINKOBA [Concomitant]
     Dosage: ONE TABLET DAILY
     Route: 048
     Dates: start: 20030619
  8. GLUCOSAMINE CHONDROITIN COMPLEX    /06278301/ [Concomitant]
     Dosage: 500-400 MG
     Dates: start: 20051229
  9. MULTIVITAMINS, PLAIN [Concomitant]
     Dosage: ONE TABLET DAILY
     Route: 048
     Dates: start: 20030619
  10. VITAMIN E                          /00110501/ [Concomitant]
     Dosage: 400 UNIT, QD
     Route: 048
     Dates: start: 20030619
  11. VERAMYST [Concomitant]
     Indication: UPPER RESPIRATORY TRACT INFECTION
     Dosage: 27.5 MUG, TWO SPRAY IN EACH NOSTRIL ONCE DAILY
     Route: 045
     Dates: start: 20130129
  12. VERAMYST [Concomitant]
     Indication: RHINITIS ALLERGIC
  13. HYDROCODONE W/ACETAMINOPHEN [Concomitant]
     Indication: ARTHRITIS
     Dosage: 2.5 TO 500 MG
     Route: 048
     Dates: start: 20111010
  14. PENNSAID [Concomitant]
     Indication: ARTHRITIS
     Dosage: 1.5 %, UNK
     Route: 062
  15. ZONATUSS [Concomitant]
     Indication: COUGH
     Dosage: 150 MG, TID
     Route: 048
     Dates: start: 20130116
  16. ADVAIR [Concomitant]
     Indication: CHRONIC OBSTRUCTIVE PULMONARY DISEASE
     Dosage: 250/50 MCG INHALE ONE PUFFS EVERY 12 HOURS
     Dates: start: 20130201
  17. VENTOLIN HFA [Concomitant]
     Indication: CHRONIC OBSTRUCTIVE PULMONARY DISEASE
     Dosage: 108 MUG, ONE TO TWO PUFFS EVERY FOUR TO SIX HOURS
     Dates: start: 20130201
  18. OMEPRAZOLE [Concomitant]
     Indication: GASTROOESOPHAGEAL REFLUX DISEASE
     Dosage: 20 MG, BID
     Route: 048
     Dates: start: 20050901
  19. CLONIDINE HCL [Concomitant]
     Dosage: 0.1 MG, TID
     Route: 048
     Dates: start: 20030619
  20. CLOPIDOGREL BISULFATE [Concomitant]
     Dosage: 75 MG, QD
     Route: 048
     Dates: start: 20080402
  21. LABETALOL HCL [Concomitant]
     Dosage: 200 MG, TWO TABLETS DAILY
     Route: 048
     Dates: start: 20100104
  22. AMLODIPINE BESYLATE [Concomitant]
     Indication: MALIGNANT HYPERTENSION
     Dosage: 5 MG, QD
     Route: 048
     Dates: start: 20121003
  23. EVISTA [Concomitant]
     Indication: OSTEOPOROSIS
     Dosage: 60 MG, QD
     Route: 048
     Dates: start: 20030619
  24. PRAVASTATIN SODIUM [Concomitant]
     Indication: PERIPHERAL VASCULAR DISORDER
     Dosage: 40 MG, QD
     Route: 048
     Dates: start: 20080924

REACTIONS (12)
  - Chronic obstructive pulmonary disease [Not Recovered/Not Resolved]
  - Pulmonary mass [Not Recovered/Not Resolved]
  - Emphysema [Not Recovered/Not Resolved]
  - Malaise [Recovered/Resolved]
  - Headache [Recovered/Resolved]
  - Influenza like illness [Recovered/Resolved]
  - Pyrexia [Recovered/Resolved]
  - Hyperhidrosis [Recovered/Resolved]
  - Cough [Not Recovered/Not Resolved]
  - Respiratory tract congestion [Not Recovered/Not Resolved]
  - Rhinorrhoea [Not Recovered/Not Resolved]
  - Nasopharyngitis [Not Recovered/Not Resolved]
